FAERS Safety Report 9149057 (Version 2)
Quarter: 2013Q3

REPORT INFORMATION
  Report Type: Spontaneous
  Country: US (occurrence: US)
  Receive Date: 20130308
  Receipt Date: 20130704
  Transmission Date: 20140515
  Serious: Yes (Death, Hospitalization)
  Sender: FDA-Public Use
  Company Number: US-PFIZER INC-2013079096

PATIENT
  Age: 65 Year
  Sex: Male

DRUGS (16)
  1. XALKORI [Suspect]
     Indication: LUNG CANCER METASTATIC
     Dosage: 250 MG, 2X/DAY
     Route: 048
     Dates: start: 201110
  2. XALKORI [Suspect]
     Dosage: 200 MG, 2X/DAY
     Route: 048
     Dates: end: 201301
  3. REGLAN [Suspect]
     Dosage: UNK
  4. MARINOL [Suspect]
     Indication: DECREASED APPETITE
     Dosage: UNK
  5. ALPRAZOLAM [Concomitant]
     Dosage: 1 MG, THREE TIMES DAILY AS NEEDED
     Route: 048
  6. DEXAMETHASONE [Concomitant]
     Dosage: 4 MG, AS NEEDED, AS DIRECTED
  7. DULCOLAX [Concomitant]
     Dosage: 200 MG, 2X/DAY
  8. FOLIC ACID [Concomitant]
     Dosage: 1 MG, 1X/DAY
  9. HYDROCODONE/ACETAMINOPHEN [Concomitant]
     Dosage: 5 MG/325 MG ONE TO TWO EVERY THREE TO FOUR HOURS AS NEEDED
     Route: 048
  10. OMEPRAZOLE [Concomitant]
     Dosage: 40 MG, 2X/DAY
     Route: 048
  11. ONDANSETRON [Concomitant]
     Dosage: 4 MG, 1X/DAY
  12. PROMETHAZINE [Concomitant]
     Dosage: 25 MG, EVERY 4-6 HOURS AS NEEDED
  13. SODIUM BICARBONATE [Concomitant]
     Dosage: 650 MG, ONE TABLET, 2X/DAY
     Route: 048
  14. ZOLPIDEM [Concomitant]
     Dosage: 5 MG, AT EVERY BEDTIME (QHS)
     Route: 048
  15. MEGACE [Concomitant]
     Dosage: 400 MG, EVERY DAY
     Route: 048
  16. LOPERAMIDE [Concomitant]
     Indication: DIARRHOEA
     Dosage: 2 MG, AS NEEDED (TWO CAPSULES AFTER EACH LOOSE STOOL UP TO EIGHT IN 24 HOURS)

REACTIONS (13)
  - Death [Fatal]
  - Nausea [Unknown]
  - Vomiting [Unknown]
  - Asthenia [Recovering/Resolving]
  - Decreased appetite [Recovering/Resolving]
  - Fall [Unknown]
  - Confusional state [Recovering/Resolving]
  - Dysarthria [Unknown]
  - Vision blurred [Unknown]
  - Arthralgia [Unknown]
  - Dehydration [Unknown]
  - Disease progression [Unknown]
  - Lung cancer metastatic [Unknown]
